FAERS Safety Report 13533142 (Version 2)
Quarter: 2017Q2

REPORT INFORMATION
  Report Type: Report from Study
  Country: BR (occurrence: BR)
  Receive Date: 20170510
  Receipt Date: 20170530
  Transmission Date: 20170830
  Serious: Yes (Other)
  Sender: FDA-Public Use
  Company Number: BR-ELI_LILLY_AND_COMPANY-BR201705001143

PATIENT
  Age: 53 Year
  Sex: Female

DRUGS (2)
  1. CETUXIMAB. [Suspect]
     Active Substance: CETUXIMAB
     Indication: COLORECTAL CANCER
     Dosage: UNK UNK, ONCE IN FOURTEEN DAYS
     Route: 042
     Dates: start: 20170418, end: 20170418
  2. CETUXIMAB. [Suspect]
     Active Substance: CETUXIMAB
     Dosage: UNK UNK, ONCE IN FOURTEEN DAYS
     Route: 042
     Dates: start: 20170418

REACTIONS (5)
  - Abdominal pain upper [Unknown]
  - Throat tightness [Unknown]
  - Ear discomfort [Unknown]
  - Pruritus [Unknown]
  - Off label use [Unknown]

NARRATIVE: CASE EVENT DATE: 20170418
